FAERS Safety Report 9409480 (Version 1)
Quarter: 2013Q3

REPORT INFORMATION
  Report Type: Spontaneous
  Country: US (occurrence: US)
  Receive Date: 20130719
  Receipt Date: 20130719
  Transmission Date: 20140515
  Serious: Yes (Hospitalization)
  Sender: FDA-Public Use
  Company Number: US-BAYER-2013-085396

PATIENT
  Age: 24 Year
  Sex: Female

DRUGS (14)
  1. OCELLA [Suspect]
  2. ZOLPIDEM [Concomitant]
  3. ALBUTEROL [Concomitant]
  4. CELEXA [Concomitant]
  5. XANAX [Concomitant]
  6. FLEXERIL [Concomitant]
  7. LORTAB [Concomitant]
  8. CLOBETASOL [Concomitant]
  9. MINOCYCLINE [Concomitant]
  10. DOXEPIN [Concomitant]
  11. PHENERGAN [Concomitant]
  12. DOXYCYCLINE [Concomitant]
  13. LO/OVRAL [Concomitant]
  14. BACTRIM [Concomitant]

REACTIONS (2)
  - Pulmonary embolism [Recovered/Resolved]
  - Thrombophlebitis superficial [Not Recovered/Not Resolved]
